FAERS Safety Report 9769389 (Version 2)
Quarter: 2013Q3

REPORT INFORMATION
  Report Type: Spontaneous
  Country: NO (occurrence: None)
  Receive Date: 20130906
  Receipt Date: 20130920
  Transmission Date: 20140515
  Serious: Yes (Hospitalization, Disabling, Other)
  Sender: FDA-Public Use
  Company Number: 2012DEPNO00126

PATIENT
  Age: 46 Year
  Sex: Male

DRUGS (13)
  1. DEPOCYT [Suspect]
     Indication: PROPHYLAXIS
     Dosage: INTRATHECAL
     Dates: start: 20110518
  2. VINCRISTIN [Suspect]
     Indication: PRODUCT USED FOR UNKNOWN INDICATION
     Route: 042
  3. OPIOIDS [Suspect]
     Indication: PRODUCT USED FOR UNKNOWN INDICATION
  4. ZOVIRAX (ACICLOVIR SODIUM) [Concomitant]
  5. TRIMETOPRIM SULFA (SULFAMETHOXAZOLE, TRIMETHOPRIM) [Concomitant]
  6. LACTULOSE (LACTULOSE) [Concomitant]
  7. DOLCONTIN (MORPHINE SULFATE) [Concomitant]
  8. OXYNORM (OXYCODONE HYDROCHLORIDE) (OXYCODONE HYDROCHLORIDE) [Concomitant]
  9. RITUXIMAB (RITUXIMAB) [Concomitant]
  10. CYCLOPHOSPHAMIDE (CYCLOPHOSPHAMIDE) [Concomitant]
  11. DOXORUBICIN (DOXORUBICIN) [Concomitant]
  12. ETOPOSIDE (ETOPOSIDE) [Concomitant]
  13. DEXAMETHASONE (DEXAMETHASONE) [Concomitant]

REACTIONS (10)
  - Perineal pain [None]
  - Faecal incontinence [None]
  - Urinary incontinence [None]
  - Abdominal pain [None]
  - Functional gastrointestinal disorder [None]
  - Constipation [None]
  - Pain in extremity [None]
  - Polyneuropathy [None]
  - Intervertebral disc protrusion [None]
  - Intervertebral disc protrusion [None]
